FAERS Safety Report 6084235-0 (Version None)
Quarter: 2009Q1

REPORT INFORMATION
  Report Type: 
  Country: None (occurrence: None)
  Receive Date: 20090219
  Receipt Date: 20090207
  Transmission Date: 20090719
  Serious: Yes (Other)
  Sender: FDA-Public Use
  Company Number: GB-ROCHE-613650

PATIENT
  Sex: Female
  Weight: 72.1 kg

DRUGS (10)
  1. ORLISTAT [Suspect]
     Indication: OBESITY
     Route: 048
     Dates: start: 20081122
  2. METFORMIN HCL [Concomitant]
     Dosage: DOSE: 1000 MG MORNING, 500 MG LUNCH, 1000 MG EVENING
     Route: 048
  3. BENDROFLUMETHIAZIDE [Concomitant]
     Indication: BLOOD PRESSURE
     Route: 048
  4. AMITRIPTYLINE HCL [Concomitant]
     Indication: FIBROMYALGIA
     Route: 048
  5. DIAMICRON [Concomitant]
  6. SIMVASTATIN [Concomitant]
     Route: 048
  7. CANDESARTAN [Concomitant]
     Indication: BLOOD PRESSURE
     Dosage: DRUG REPORTED AS CANDESRTAN
     Route: 048
  8. CITALOPRAM HYDROBROMIDE [Concomitant]
     Indication: DEPRESSION
     Dosage: DRUG REPORTED AS CITOLPRAM
     Route: 048
  9. DOXAZOSIN MESYLATE [Concomitant]
     Indication: BLOOD PRESSURE
     Route: 048
  10. PARACETAMOL [Concomitant]
     Indication: PAIN
     Dosage: DOSE: 100 MG AS AND WHEN REQUIRED
     Route: 048

REACTIONS (1)
  - HYPERTENSION [None]
